FAERS Safety Report 7190120-3 (Version None)
Quarter: 2010Q4

REPORT INFORMATION
  Report Type: 
  Country: None (occurrence: None)
  Receive Date: 20101223
  Receipt Date: 20101216
  Transmission Date: 20110411
  Serious: Yes (Other)
  Sender: FDA-Public Use
  Company Number: US-US-EMD SERONO, INC.-233874J09USA

PATIENT
  Sex: Female

DRUGS (4)
  1. REBIF [Suspect]
     Indication: RELAPSING-REMITTING MULTIPLE SCLEROSIS
     Route: 058
     Dates: start: 19950101
  2. REBIF [Suspect]
     Route: 058
     Dates: start: 20090302
  3. VITAMIN D2 [Concomitant]
  4. XYZAL [Concomitant]

REACTIONS (7)
  - CONSTIPATION [None]
  - HAEMORRHAGIC OVARIAN CYST [None]
  - HAEMORRHOIDS [None]
  - LOSS OF CONSCIOUSNESS [None]
  - MICTURITION URGENCY [None]
  - MUSCULAR WEAKNESS [None]
  - NAUSEA [None]
